FAERS Safety Report 6630305-5 (Version None)
Quarter: 2010Q1

REPORT INFORMATION
  Report Type: 
  Country: None (occurrence: None)
  Receive Date: 20100311
  Receipt Date: 20100304
  Transmission Date: 20100710
  Serious: Yes (Death, Hospitalization)
  Sender: FDA-Public Use
  Company Number: PHHY2010CA09748

PATIENT
  Sex: Female
  Weight: 63.6 kg

DRUGS (9)
  1. EXELON [Suspect]
     Indication: DEMENTIA ALZHEIMER'S TYPE
     Dosage: 10 CM2, 9.5 MG QD
     Route: 062
     Dates: start: 20090303
  2. EXELON [Suspect]
     Dosage: UNK
     Dates: end: 20100130
  3. DILTIAZEM HCL [Concomitant]
     Dosage: 240 MG DAILY
  4. ATACAND [Concomitant]
     Dosage: 8 MG DAILY
  5. IMDUR [Concomitant]
     Dosage: 60 MG DAILY
  6. ASPIRIN [Concomitant]
     Dosage: 325 MG DAILY
  7. SYNTHROID [Concomitant]
     Dosage: 0.075 MG DAILY
  8. LIPITOR [Concomitant]
     Dosage: 20 MG DAILY
  9. PANTOPRAZOLE [Concomitant]
     Dosage: 40 MG DAILY

REACTIONS (1)
  - BRONCHOPNEUMONIA [None]
